FAERS Safety Report 6235446-2 (Version None)
Quarter: 2009Q2

REPORT INFORMATION
  Report Type: 
  Country: None (occurrence: None)
  Receive Date: 20090618
  Receipt Date: 20090413
  Transmission Date: 20091009
  Serious: No
  Sender: FDA-Public Use
  Company Number: US-ASTRAZENECA-2009UW09257

PATIENT
  Age: 81 Year
  Sex: Male

DRUGS (12)
  1. RHINOCORT [Suspect]
     Route: 045
  2. PRILOSEC [Concomitant]
     Route: 048
  3. WELCHOL [Concomitant]
  4. COREG [Concomitant]
  5. ISOSORBIDE [Concomitant]
  6. ASPIRIN [Concomitant]
  7. XYZAL [Concomitant]
  8. FLOMAX [Concomitant]
  9. POLYETHYLENE GLYCOL [Concomitant]
  10. METFORMIN HCL [Concomitant]
  11. NITROGLYCERIN [Concomitant]
  12. XALATAN [Concomitant]

REACTIONS (1)
  - VISION BLURRED [None]
